FAERS Safety Report 22188447 (Version 1)
Quarter: 2023Q2

REPORT INFORMATION
  Report Type: Report from Study
  Country: MY (occurrence: None)
  Receive Date: 20230408
  Receipt Date: 20230408
  Transmission Date: 20230721
  Serious: Yes (Death)
  Sender: FDA-Public Use
  Company Number: 2023A080628

PATIENT
  Age: 26817 Day
  Sex: Female

DRUGS (1)
  1. TAGRISSO [Suspect]
     Active Substance: OSIMERTINIB
     Indication: Adenocarcinoma metastatic
     Route: 048
     Dates: start: 20210428

REACTIONS (1)
  - Death [Fatal]

NARRATIVE: CASE EVENT DATE: 20221124
